FAERS Safety Report 4389361-X (Version None)
Quarter: 2004Q2

REPORT INFORMATION
  Report Type: 
  Country: None (occurrence: None)
  Receive Date: 20040630
  Receipt Date: 20040615
  Transmission Date: 20050107
  Serious: Yes (Hospitalization)
  Sender: FDA-Public Use
  Company Number: 2004219572JP

PATIENT
  Age: 67 Year
  Sex: Male

DRUGS (3)
  1. XALATAN [Suspect]
     Indication: ANGLE CLOSURE GLAUCOMA
     Dosage: OPHTHALMIC
     Route: 047
  2. PILOCARPINE (PILOCARPINE) [Concomitant]
  3. ACETAZOLAMIDE [Concomitant]

REACTIONS (1)
  - UVEAL EFFUSION SYNDROME [None]
